FAERS Safety Report 10173167 (Version 1)
Quarter: 2014Q2

REPORT INFORMATION
  Report Type: Spontaneous
  Country: US (occurrence: None)
  Receive Date: 20140514
  Receipt Date: 20140514
  Transmission Date: 20141212
  Serious: Yes (Death)
  Sender: FDA-Public Use
  Company Number: None

PATIENT
  Age: 71 Year
  Sex: Male
  Weight: 86.18 kg

DRUGS (1)
  1. TESTOSTERONE(ANDROGEL) [Suspect]
     Dosage: 2 TIME PER MONTH INTO THE MUSCLE
     Route: 030

REACTIONS (1)
  - Myocardial infarction [None]
